FAERS Safety Report 13768769 (Version 1)
Quarter: 2017Q3

REPORT INFORMATION
  Report Type: Spontaneous
  Country: AT (occurrence: AT)
  Receive Date: 20170719
  Receipt Date: 20170719
  Transmission Date: 20171127
  Serious: Yes (Other)
  Sender: FDA-Public Use
  Company Number: AT-ASTRAZENECA-2017SE41355

PATIENT
  Sex: Female

DRUGS (1)
  1. TAGRISSO [Suspect]
     Active Substance: OSIMERTINIB
     Indication: LUNG ADENOCARCINOMA
     Dosage: 80.0MG UNKNOWN
     Route: 048

REACTIONS (4)
  - Rash [Unknown]
  - Haematoma [Unknown]
  - Lung neoplasm malignant [Unknown]
  - Epistaxis [Recovering/Resolving]
